FAERS Safety Report 7461696-3 (Version None)
Quarter: 2011Q2

REPORT INFORMATION
  Report Type: 
  Country: None (occurrence: None)
  Receive Date: 20110506
  Receipt Date: 20091120
  Transmission Date: 20111010
  Serious: Yes (Other)
  Sender: FDA-Public Use
  Company Number: US-BAYER-200940982NA

PATIENT
  Age: 70 Year
  Sex: Male
  Weight: 77.098 kg

DRUGS (22)
  1. DOPAMINE HCL [Concomitant]
     Dosage: TITRATED
     Route: 042
     Dates: start: 20040628
  2. AMICAR [Concomitant]
     Dosage: 40 ML, UNK
     Route: 042
     Dates: start: 20040628
  3. ATENOLOL [Concomitant]
     Dosage: 50 MG, QD
     Route: 048
  4. LISINOPRIL [Concomitant]
     Dosage: 10 MG, QD
     Route: 048
  5. MANITOL [Concomitant]
     Dosage: UNK
     Route: 042
     Dates: start: 20040628
  6. TRASYLOL [Suspect]
     Indication: CORONARY ARTERY BYPASS
     Dosage: UNK
     Dates: start: 20040628
  7. ANCEF [Concomitant]
     Dosage: UNK
     Route: 042
     Dates: start: 20040628
  8. PROTAMINE SULFATE [Concomitant]
     Dosage: UNK
     Route: 042
     Dates: start: 20040628
  9. RED BLOOD CELLS [Concomitant]
     Dosage: 3 U, UNK
     Dates: start: 20040628
  10. GLIPIZIDE [Concomitant]
     Dosage: 10 MG, QD
     Route: 048
  11. ASPIRIN [Concomitant]
     Dosage: 81 MG, QD
     Route: 048
  12. LORAZEPAM [Concomitant]
     Dosage: 0.5 MG/EVERY 6HRS AS NEEDED
     Route: 048
  13. HEPARIN [Concomitant]
     Dosage: UNK
     Route: 042
     Dates: start: 20040628
  14. LOVASTATIN [Concomitant]
     Dosage: 40 MG, QD
     Route: 048
  15. HYDROCHLOROTHIAZIDE [Concomitant]
     Dosage: 17.5/DAILY
     Route: 048
  16. INSULIN [Concomitant]
     Dosage: UNK
     Route: 042
     Dates: start: 20040628
  17. NITROGLYCERIN [Concomitant]
     Dosage: 0.5MICROGRAM/KG/MINUTE
     Route: 042
     Dates: start: 20040628
  18. MIDAZOLAM [Concomitant]
     Dosage: UNK
     Route: 042
     Dates: start: 20040628
  19. ALBUMIN (HUMAN) [Concomitant]
     Dosage: UNK
     Dates: start: 20040628
  20. LIDOCAINE [Concomitant]
     Dosage: UNK
     Route: 042
     Dates: start: 20040628
  21. BUPROPION [Concomitant]
     Dosage: 100 MG/24HR, UNK
     Route: 048
  22. RED BLOOD CELLS [Concomitant]
     Dosage: 2 U, UNK
     Dates: start: 20040629

REACTIONS (11)
  - RENAL FAILURE [None]
  - DEPRESSION [None]
  - MULTI-ORGAN FAILURE [None]
  - RENAL INJURY [None]
  - FEAR [None]
  - ANHEDONIA [None]
  - UNEVALUABLE EVENT [None]
  - PAIN [None]
  - INJURY [None]
  - ANXIETY [None]
  - DISABILITY [None]
